FAERS Safety Report 18065332 (Version 1)
Quarter: 2020Q3

REPORT INFORMATION
  Report Type: Spontaneous
  Country: US (occurrence: US)
  Receive Date: 20200723
  Receipt Date: 20200723
  Transmission Date: 20201103
  Serious: Yes (Other)
  Sender: FDA-Public Use
  Company Number: None

PATIENT
  Age: 59 Year
  Sex: Female
  Weight: 60.75 kg

DRUGS (2)
  1. AMLODIPINE [Suspect]
     Active Substance: AMLODIPINE BESYLATE
     Dosage: ?          QUANTITY:1 TABLET(S);?
     Route: 048
     Dates: start: 20200310, end: 20200718
  2. ADVIL [Concomitant]
     Active Substance: IBUPROFEN

REACTIONS (4)
  - Joint swelling [None]
  - Night sweats [None]
  - Hypoaesthesia [None]
  - Heart rate irregular [None]

NARRATIVE: CASE EVENT DATE: 20200612
